FAERS Safety Report 8529891-X (Version None)
Quarter: 2012Q3

REPORT INFORMATION
  Report Type: 
  Country: None (occurrence: None)
  Receive Date: 20120723
  Receipt Date: 20120713
  Transmission Date: 20120928
  Serious: Yes (Disabling)
  Sender: FDA-Public Use
  Company Number: US-009507513-1109USA02512

PATIENT

DRUGS (3)
  1. PROSCAR [Suspect]
     Dosage: 5 MG, QD
     Route: 048
     Dates: start: 20100101, end: 20101101
  2. PROPECIA [Suspect]
     Indication: ALOPECIA
     Dosage: 5 MG, QD
     Route: 048
     Dates: start: 20070101, end: 20101101
  3. PROSCAR [Suspect]
     Indication: ALOPECIA
     Dosage: 5 MG, QD
     Route: 048
     Dates: start: 20070101, end: 20101101

REACTIONS (25)
  - ANXIETY [None]
  - RHINITIS [None]
  - POOR DENTAL CONDITION [None]
  - PENIS DISORDER [None]
  - EMOTIONAL DISTRESS [None]
  - GENITOURINARY TRACT NEOPLASM [None]
  - PROSTATIC SPECIFIC ANTIGEN INCREASED [None]
  - BACK PAIN [None]
  - DEPRESSION [None]
  - INTENTIONAL DRUG MISUSE [None]
  - INGUINAL HERNIA [None]
  - PROSTATOMEGALY [None]
  - DYSPHAGIA [None]
  - NOCTURIA [None]
  - ERECTILE DYSFUNCTION [None]
  - ANORGASMIA [None]
  - ANDROGEN DEFICIENCY [None]
  - MALE GENITAL EXAMINATION ABNORMAL [None]
  - WHEEZING [None]
  - OVERDOSE [None]
  - VERTIGO POSITIONAL [None]
  - DYSPNOEA [None]
  - ABDOMINAL PAIN [None]
  - PHIMOSIS [None]
  - DRY MOUTH [None]
